FAERS Safety Report 4343930-1 (Version None)
Quarter: 2004Q2

REPORT INFORMATION
  Report Type: 
  Country: None (occurrence: None)
  Receive Date: 20040419
  Receipt Date: 20040408
  Transmission Date: 20050107
  Serious: Yes (Hospitalization)
  Sender: FDA-Public Use
  Company Number: US-JNJFOC-20040402275

PATIENT
  Age: 32 Year
  Sex: Female

DRUGS (8)
  1. ELMIRON [Suspect]
     Indication: CYSTITIS INTERSTITIAL
     Dosage: 100 MG, 3 IN 1 DAY, ORAL
     Route: 048
  2. VICODIN [Concomitant]
  3. ROBAXIN [Concomitant]
  4. PYRIDIUM (PHENAZOPYRIDE HYDROCHLORIDE) [Concomitant]
  5. METHADONE (METHADONE) [Concomitant]
  6. AMBIEN [Concomitant]
  7. DONITOL (DOLONIL) [Concomitant]
  8. TRANSDON (ALL OTHER THERAPEUTIC PRODUCTS) [Concomitant]

REACTIONS (5)
  - BODY TEMPERATURE INCREASED [None]
  - DIARRHOEA [None]
  - INFECTION [None]
  - RESPIRATORY DISORDER [None]
  - SYNCOPE [None]
